FAERS Safety Report 8818353 (Version 4)
Quarter: 2013Q3

REPORT INFORMATION
  Report Type: Spontaneous
  Country: US (occurrence: US)
  Receive Date: 20121001
  Receipt Date: 20130807
  Transmission Date: 20140515
  Serious: Yes (Hospitalization, Other)
  Sender: FDA-Public Use
  Company Number: US-009507513-1209USA010880

PATIENT
  Sex: Female
  Weight: 82.99 kg

DRUGS (3)
  1. FOSAMAX [Suspect]
     Indication: OSTEOPOROSIS
     Dosage: 10 MG, UNK
     Route: 048
     Dates: start: 1999
  2. FOSAMAX [Suspect]
     Dosage: 70 MG, UNK
     Route: 048
     Dates: start: 2001, end: 201007
  3. ALENDRONATE SODIUM [Suspect]
     Dosage: 70 MG, QW
     Route: 048

REACTIONS (49)
  - Intramedullary rod insertion [Unknown]
  - Spinal operation [Recovering/Resolving]
  - Cholecystectomy [Unknown]
  - Open reduction of fracture [Unknown]
  - Pulmonary embolism [Unknown]
  - Surgery [Unknown]
  - Femur fracture [Unknown]
  - Wrist fracture [Unknown]
  - Adverse event [Unknown]
  - Hypertension [Unknown]
  - Lumbar vertebral fracture [Unknown]
  - Lumbar spinal stenosis [Unknown]
  - Spinal osteoarthritis [Unknown]
  - Sleep apnoea syndrome [Unknown]
  - Dyslipidaemia [Unknown]
  - Gout [Unknown]
  - Cataract [Unknown]
  - Catheterisation cardiac [Unknown]
  - Cataract operation [Unknown]
  - Thrombosis [Unknown]
  - Bleeding time prolonged [Unknown]
  - Increased tendency to bruise [Unknown]
  - Peripheral vascular disorder [Unknown]
  - Bursitis [Unknown]
  - Body height decreased [Unknown]
  - Hand fracture [Unknown]
  - Foot fracture [Unknown]
  - Spinal fracture [Unknown]
  - Stress urinary incontinence [Unknown]
  - Muscular weakness [Unknown]
  - Scab [Unknown]
  - Pharyngeal erythema [Unknown]
  - Cardiac murmur [Unknown]
  - Muscle tightness [Unknown]
  - Pain [Not Recovered/Not Resolved]
  - Musculoskeletal stiffness [Unknown]
  - Atelectasis [Unknown]
  - Sjogren^s syndrome [Unknown]
  - Pleural effusion [Unknown]
  - Thrombosis [Unknown]
  - Joint swelling [Unknown]
  - Arthralgia [Unknown]
  - Back pain [Unknown]
  - Back pain [Unknown]
  - Gastrooesophageal reflux disease [Unknown]
  - Constipation [Unknown]
  - Diarrhoea [Unknown]
  - Oedema peripheral [Unknown]
  - Scleritis [Unknown]
